FAERS Safety Report 26007029 (Version 1)
Quarter: 2025Q4

REPORT INFORMATION
  Report Type: Spontaneous
  Country: CN (occurrence: CN)
  Receive Date: 20251106
  Receipt Date: 20251106
  Transmission Date: 20260117
  Serious: Yes (Hospitalization)
  Sender: PFIZER
  Company Number: CN-PFIZER INC-PV202500129928

PATIENT
  Age: 16 Year
  Sex: Female

DRUGS (2)
  1. METHOTREXATE SODIUM [Suspect]
     Active Substance: METHOTREXATE SODIUM
     Indication: Acute lymphocytic leukaemia
     Dosage: 4 G, 1X/DAY
     Route: 041
     Dates: start: 20251013, end: 20251014
  2. PEGASPARGASE [Suspect]
     Active Substance: PEGASPARGASE
     Indication: Acute lymphocytic leukaemia
     Dosage: 3475 IU, 1X/DAY
     Route: 030
     Dates: start: 20251019, end: 20251019

REACTIONS (4)
  - Coagulopathy [Recovering/Resolving]
  - Stomatitis [Recovering/Resolving]
  - Mouth ulceration [Recovering/Resolving]
  - Burning sensation mucosal [Recovering/Resolving]

NARRATIVE: CASE EVENT DATE: 20251019
